FAERS Safety Report 6714571-3 (Version None)
Quarter: 2010Q2

REPORT INFORMATION
  Report Type: 
  Country: None (occurrence: None)
  Receive Date: 20100507
  Receipt Date: 20100429
  Transmission Date: 20101027
  Serious: Yes (Hospitalization)
  Sender: FDA-Public Use
  Company Number: US-SHIRE-SPV1-2010-00828

PATIENT

DRUGS (1)
  1. INTUNIV [Suspect]
     Indication: DRUG USE FOR UNKNOWN INDICATION
     Dosage: 4 MG, 1X/DAY:QD
     Route: 048
     Dates: end: 20100424

REACTIONS (4)
  - FLUSHING [None]
  - HEART RATE ABNORMAL [None]
  - LABILE BLOOD PRESSURE [None]
  - RASH [None]
